FAERS Safety Report 9511866 (Version 1)
Quarter: 2013Q1

REPORT INFORMATION
  Report Type: Spontaneous
  Country: US (occurrence: None)
  Receive Date: 20130305
  Receipt Date: 20130305
  Transmission Date: 20140127
  Serious: Yes (Other)
  Sender: FDA-Public Use
  Company Number: 163-21880-12111891

PATIENT
  Age: 72 Year
  Sex: Female
  Weight: 59.42 kg

DRUGS (10)
  1. REVLIMID [Suspect]
     Indication: PLASMA CELL MYELOMA
     Route: 048
     Dates: start: 20110715, end: 2012
  2. CALCIUM (CALCIUM) [Concomitant]
  3. DEXAMETHASONE (DEXAMETHASONE) [Concomitant]
  4. OMEGA 3 FISH OIL (FISH OIL) [Concomitant]
  5. HYDROCODONE/ACET (VICODIN) [Concomitant]
  6. VITAMINS [Concomitant]
  7. POTASSIUM (POTASSIUM) [Concomitant]
  8. VELCADE (BORTEZOMIB) [Concomitant]
  9. VITAMIN B12 (CYANOCOBALAMIN) [Concomitant]
  10. VITAMIN D (PHYTOMENADIONE) [Concomitant]

REACTIONS (3)
  - Rash pruritic [None]
  - Fatigue [None]
  - Platelet count decreased [None]
